FAERS Safety Report 8166127-6 (Version None)
Quarter: 2012Q1

REPORT INFORMATION
  Report Type: 
  Country: None (occurrence: None)
  Receive Date: 20120227
  Receipt Date: 20110328
  Transmission Date: 20120608
  Serious: No
  Sender: FDA-Public Use
  Company Number: US-MYLANLABS-2011S1006569

PATIENT
  Age: 16 Year
  Sex: Male

DRUGS (3)
  1. ADDERALL XR 10 [Concomitant]
     Route: 048
  2. AMNESTEEM [Suspect]
     Indication: ACNE
     Route: 048
     Dates: start: 20110216, end: 20110324
  3. AMNESTEEM [Suspect]
     Route: 048
     Dates: start: 20110404

REACTIONS (3)
  - DRY SKIN [None]
  - ECZEMA [None]
  - RASH [None]
